FAERS Safety Report 8084289-6 (Version None)
Quarter: 2012Q1

REPORT INFORMATION
  Report Type: 
  Country: None (occurrence: None)
  Receive Date: 20120128
  Receipt Date: 20110307
  Transmission Date: 20120608
  Serious: No
  Sender: FDA-Public Use
  Company Number: US-ABBOTT-11P-163-0709803-00

PATIENT
  Age: 12 Year
  Sex: Male

DRUGS (5)
  1. HUMIRA [Suspect]
     Indication: CROHN'S DISEASE
     Dosage: FIRST LOADING DOSE
     Dates: start: 20110124
  2. HUMIRA [Suspect]
     Dosage: SECOND LOADING DOSE
  3. HUMIRA [Suspect]
  4. IRON [Concomitant]
     Indication: ANAEMIA
     Dosage: WEEKLY INFUSION
  5. LOVENOX [Concomitant]
     Indication: THROMBOSIS

REACTIONS (3)
  - DIARRHOEA [None]
  - VOMITING [None]
  - FUNGAL INFECTION [None]
